FAERS Safety Report 26144674 (Version 1)
Quarter: 2025Q4

REPORT INFORMATION
  Report Type: Spontaneous
  Country: US (occurrence: None)
  Receive Date: 20251210
  Receipt Date: 20251210
  Transmission Date: 20260119
  Serious: Yes (Other)
  Sender: FDA-CTU
  Company Number: None

PATIENT
  Age: 76 Year
  Sex: Female

DRUGS (1)
  1. GABAPENTIN [Suspect]
     Active Substance: GABAPENTIN
     Indication: Migraine
     Dosage: OTHER FREQUENCY : 3 TIMES/DAY AS NEEDED;?IGABAPENTIN CAP 400MG 1 CAPSULE 3 TIMES/DAY AS NEEDE? I

REACTIONS (2)
  - Tremor [None]
  - Seizure [None]
